FAERS Safety Report 17537629 (Version 1)
Quarter: 2020Q1

REPORT INFORMATION
  Report Type: Spontaneous
  Country: US (occurrence: US)
  Receive Date: 20200313
  Receipt Date: 20200313
  Transmission Date: 20200409
  Serious: Yes (Death, Other)
  Sender: FDA-Public Use
  Company Number: US-STRIDES ARCOLAB LIMITED-2020SP002966

PATIENT
  Age: 17 Year
  Sex: Female

DRUGS (2)
  1. MECLIZINE [Suspect]
     Active Substance: MECLIZINE HYDROCHLORIDE
     Indication: PRODUCT USED FOR UNKNOWN INDICATION
     Dosage: UNK
     Route: 048
  2. BENZONATATE. [Suspect]
     Active Substance: BENZONATATE
     Indication: PRODUCT USED FOR UNKNOWN INDICATION
     Dosage: UNK
     Route: 048

REACTIONS (13)
  - Toxicity to various agents [Fatal]
  - Pupil fixed [Unknown]
  - Cardiac arrest [Unknown]
  - Hepatic enzyme increased [Recovered/Resolved]
  - Completed suicide [Fatal]
  - Coma [Unknown]
  - Decerebrate posture [Unknown]
  - Seizure [Unknown]
  - Pulse absent [Unknown]
  - Tremor [Unknown]
  - Apnoea [Unknown]
  - Somnolence [Unknown]
  - Respiratory arrest [Unknown]
